FAERS Safety Report 17907912 (Version 1)
Quarter: 2020Q2

REPORT INFORMATION
  Report Type: Spontaneous
  Country: CN (occurrence: CN)
  Receive Date: 20200617
  Receipt Date: 20200617
  Transmission Date: 20200714
  Serious: Yes (Other)
  Sender: FDA-Public Use
  Company Number: CN-ROCHE-2624095

PATIENT
  Age: 68 Year
  Sex: Female

DRUGS (2)
  1. XELODA [Suspect]
     Active Substance: CAPECITABINE
     Indication: COLON CANCER
     Dosage: 1000 MG2
     Route: 048
     Dates: start: 20170410
  2. OXALIPLATIN. [Suspect]
     Active Substance: OXALIPLATIN
     Indication: COLON CANCER
     Dosage: 130 ML/M2
     Route: 041
     Dates: start: 20170410

REACTIONS (5)
  - Movement disorder [Unknown]
  - Asthenia [Unknown]
  - Hyperplasia [Unknown]
  - Fall [Unknown]
  - Femoral neck fracture [Unknown]
